FAERS Safety Report 6147687-3 (Version None)
Quarter: 2009Q2

REPORT INFORMATION
  Report Type: 
  Country: None (occurrence: None)
  Receive Date: 20090408
  Receipt Date: 20090402
  Transmission Date: 20091009
  Serious: Yes (Other)
  Sender: FDA-Public Use
  Company Number: PHHY2009IT12410

PATIENT
  Sex: Male

DRUGS (1)
  1. ZOMETA [Suspect]
     Indication: BONE LESION
     Dosage: UNK
     Dates: start: 20011214, end: 20040920

REACTIONS (1)
  - OSTEONECROSIS [None]
